FAERS Safety Report 18480248 (Version 1)
Quarter: 2020Q4

REPORT INFORMATION
  Report Type: Spontaneous
  Country: US (occurrence: US)
  Receive Date: 20201109
  Receipt Date: 20201109
  Transmission Date: 20210114
  Serious: No
  Sender: FDA-Public Use
  Company Number: None

PATIENT
  Age: 35 Year
  Sex: Female
  Weight: 63 kg

DRUGS (3)
  1. RIZATRIPTAN ODT [Suspect]
     Active Substance: RIZATRIPTAN BENZOATE
     Indication: MIGRAINE
  2. MULTIVITAMIN [Concomitant]
     Active Substance: VITAMINS
  3. B2 [Concomitant]

REACTIONS (3)
  - Dyspnoea [None]
  - Heart rate increased [None]
  - Pruritus [None]

NARRATIVE: CASE EVENT DATE: 20201109
